FAERS Safety Report 8580813-5 (Version None)
Quarter: 2012Q3

REPORT INFORMATION
  Report Type: 
  Country: None (occurrence: None)
  Receive Date: 20120809
  Receipt Date: 20120801
  Transmission Date: 20120928
  Serious: No
  Sender: FDA-Public Use
  Company Number: US-B.I. PHARMACEUTICALS,INC./RIDGEFIELD-2012-BP-17384BP

PATIENT
  Age: 74 Year
  Sex: Female

DRUGS (2)
  1. PRADAXA [Suspect]
     Indication: ATRIAL FIBRILLATION
  2. UNSPECIFIED BLOOD PRESSURE MEDICATION [Concomitant]
     Indication: HYPERTENSION

REACTIONS (3)
  - FALL [None]
  - HAEMATOMA [None]
  - BLOOD PRESSURE DECREASED [None]
